FAERS Safety Report 7627531-5 (Version None)
Quarter: 2011Q3

REPORT INFORMATION
  Report Type: 
  Country: None (occurrence: None)
  Receive Date: 20110713
  Receipt Date: 20110630
  Transmission Date: 20111222
  Serious: Yes (Hospitalization)
  Sender: FDA-Public Use
  Company Number: 1000020821

PATIENT
  Age: 78 Year
  Sex: Female

DRUGS (8)
  1. DIPIRIDAMOL (DIPYRIDAMOLE) (DIPYRIDAMOLE) [Concomitant]
  2. ASPIRIN (ACETYLSALICYLIC ACID) (TABLETS) (ACETYLSALICYLIC ACID) [Concomitant]
  3. NITROGLYCERINE (GLYCERYL TRINITRATE) (POULTICE OR PATCH) (GLYCERYL TRI [Concomitant]
  4. ESCITALOPRAM OXALATE [Suspect]
     Indication: ANXIETY
     Dosage: 10 MG (10 MG, 1 IN 1 D)
     Dates: start: 20091101, end: 20100201
  5. ESCITALOPRAM OXALATE [Suspect]
     Indication: DEPRESSION
     Dosage: 10 MG (10 MG, 1 IN 1 D)
     Dates: start: 20091101, end: 20100201
  6. PANTOPRAZOLE (PANTOPRAZOLE) (PANTOPRAZOLE) [Concomitant]
  7. METOPROLO (METOPROLOL) (METOPROLOL) [Concomitant]
  8. INSULIN (INSULIN) (INSULIN) [Concomitant]

REACTIONS (1)
  - MYOCLONUS [None]
